FAERS Safety Report 8739571 (Version 2)
Quarter: 2013Q4

REPORT INFORMATION
  Report Type: Report from Study
  Country: DE (occurrence: DE)
  Receive Date: 20120823
  Receipt Date: 20131118
  Transmission Date: 20140711
  Serious: Yes (Death)
  Sender: FDA-Public Use
  Company Number: DE-ROCHE-802592

PATIENT
  Age: 66 Year
  Sex: Male
  Weight: 87 kg

DRUGS (5)
  1. TOCILIZUMAB [Suspect]
     Indication: RHEUMATOID ARTHRITIS
     Route: 042
  2. LEFLUNOMID [Suspect]
     Indication: RHEUMATOID ARTHRITIS
     Route: 048
     Dates: start: 20110414, end: 20110829
  3. ORENCIA [Concomitant]
     Indication: RHEUMATOID ARTHRITIS
     Route: 042
     Dates: start: 20110103, end: 20110829
  4. DECORTIN H [Concomitant]
     Indication: RHEUMATOID ARTHRITIS
     Route: 048
  5. HYDROMORPHONE [Concomitant]
     Indication: PAIN
     Route: 048
     Dates: start: 20100708

REACTIONS (2)
  - Thrombocytopenia [Fatal]
  - Cardiac failure [Fatal]
